FAERS Safety Report 10263060 (Version 2)
Quarter: 2014Q2

REPORT INFORMATION
  Report Type: Report from Study
  Country: US (occurrence: US)
  Receive Date: 20140626
  Receipt Date: 20140626
  Transmission Date: 20141212
  Serious: Yes (Death)
  Sender: FDA-Public Use
  Company Number: US-MYLANLABS-2013S1028813

PATIENT
  Age: 66 Year
  Sex: Male

DRUGS (11)
  1. CLOZAPINE TABLETS [Suspect]
     Route: 048
     Dates: end: 20131213
  2. LEVOTHYROXINE [Concomitant]
  3. VALPROIC ACID [Concomitant]
  4. AMANTADINE [Concomitant]
  5. OXYBUTYNIN [Concomitant]
  6. XANAX [Concomitant]
  7. FLOMAX /01280302/ [Concomitant]
  8. MEGESTROL ACETATE [Concomitant]
  9. MIRTAZAPINE [Concomitant]
  10. MIRALAX /00754501/ [Concomitant]
  11. LACTULOSE [Concomitant]

REACTIONS (1)
  - Death [Fatal]
